FAERS Safety Report 8576753-8 (Version None)
Quarter: 2012Q3

REPORT INFORMATION
  Report Type: 
  Country: None (occurrence: None)
  Receive Date: 20120807
  Receipt Date: 20120731
  Transmission Date: 20120928
  Serious: No
  Sender: FDA-Public Use
  Company Number: US-ASTRAZENECA-2012SE54458

PATIENT
  Age: 19629 Day
  Sex: Male
  Weight: 77.1 kg

DRUGS (3)
  1. ATENOLOL [Suspect]
     Indication: BLOOD PRESSURE
     Route: 048
  2. CRESTOR [Suspect]
     Route: 048
  3. ASPIRIN [Concomitant]

REACTIONS (6)
  - ARTHRALGIA [None]
  - WEIGHT DECREASED [None]
  - FEELING ABNORMAL [None]
  - UBIQUINONE DECREASED [None]
  - MALAISE [None]
  - DECREASED APPETITE [None]
